FAERS Safety Report 5958129-2 (Version None)
Quarter: 2008Q4

REPORT INFORMATION
  Report Type: 
  Country: None (occurrence: None)
  Receive Date: 20081119
  Receipt Date: 20081028
  Transmission Date: 20090506
  Serious: Yes (Other)
  Sender: FDA-Public Use
  Company Number: PHHY2008RU24828

PATIENT
  Age: 75 Year
  Sex: Female

DRUGS (3)
  1. MIACALCIN [Suspect]
     Dosage: 1 DF ; 100 IU/ML (1ML)
     Dates: start: 20030101
  2. DICLOFENAC SODIUM [Concomitant]
     Dosage: UNK
  3. NOLECALCIFEROL+NALCIUM CARBONATE [Concomitant]

REACTIONS (3)
  - FEELING ABNORMAL [None]
  - LOSS OF CONSCIOUSNESS [None]
  - PRURITUS [None]
